FAERS Safety Report 8788846 (Version 1)
Quarter: 2012Q4

REPORT INFORMATION
  Report Type: 
  Country: US (occurrence: US)
  Receive Date: 20120914
  Receipt Date: 20120914
  Transmission Date: 20130627
  Serious: No
  Sender: FDA-Public Use
  Company Number: US-PFIZER INC-2012227437

PATIENT
  Age: 59 Year
  Sex: Female
  Weight: 74.83 kg

DRUGS (2)
  1. ESTRING [Suspect]
     Indication: VULVOVAGINAL DRYNESS
     Dosage: UNK
     Route: 067
     Dates: start: 2012
  2. PREMARIN [Concomitant]
     Indication: MENOPAUSE
     Dosage: 0.625 mg, daily

REACTIONS (2)
  - Product quality issue [Unknown]
  - Vulvovaginal discomfort [Unknown]
